FAERS Safety Report 20165665 (Version 1)
Quarter: 2021Q4

REPORT INFORMATION
  Report Type: Spontaneous
  Country: US (occurrence: US)
  Receive Date: 20211209
  Receipt Date: 20211209
  Transmission Date: 20220303
  Serious: Yes (Hospitalization)
  Sender: FDA-Public Use
  Company Number: US-BAYER-2021A262800

PATIENT
  Age: 63 Year
  Sex: Female

DRUGS (7)
  1. ASPIRIN [Suspect]
     Active Substance: ASPIRIN
  2. METFORMIN [Concomitant]
     Active Substance: METFORMIN HYDROCHLORIDE
  3. HYDROCHLOROTHIAZIDE [Concomitant]
     Active Substance: HYDROCHLOROTHIAZIDE
  4. ALBUTEROL\IPRATROPIUM [Concomitant]
     Active Substance: ALBUTEROL\IPRATROPIUM
  5. METHYLPREDNISOLONE [Concomitant]
     Active Substance: METHYLPREDNISOLONE
  6. MAGNESIUM [Concomitant]
     Active Substance: MAGNESIUM
  7. NITROGLYCERIN [Concomitant]
     Active Substance: NITROGLYCERIN
     Indication: Hypertensive urgency

REACTIONS (2)
  - Oesophageal ulcer [Recovered/Resolved]
  - Haematemesis [None]
